FAERS Safety Report 25183104 (Version 1)
Quarter: 2025Q2

REPORT INFORMATION
  Report Type: Other
  Country: GB (occurrence: GB)
  Receive Date: 20250410
  Receipt Date: 20250410
  Transmission Date: 20250716
  Serious: Yes (Other)
  Sender: STRIDES
  Company Number: None

PATIENT
  Age: 24 Year
  Sex: Female
  Weight: 74 kg

DRUGS (1)
  1. IBUPROFEN [Suspect]
     Active Substance: IBUPROFEN
     Indication: Ill-defined disorder
     Route: 065

REACTIONS (2)
  - Eye swelling [Unknown]
  - Pruritus [Unknown]

NARRATIVE: CASE EVENT DATE: 20250328
